FAERS Safety Report 21973553 (Version 1)
Quarter: 2023Q1

REPORT INFORMATION
  Report Type: Spontaneous
  Country: US (occurrence: None)
  Receive Date: 20230207
  Receipt Date: 20230207
  Transmission Date: 20230418
  Serious: Yes (Hospitalization)
  Sender: FDA-Public Use
  Company Number: None

PATIENT
  Sex: Female

DRUGS (1)
  1. PROLIA [Suspect]
     Active Substance: DENOSUMAB
     Indication: Osteoarthritis
     Dosage: OTHER FREQUENCY : EVERY 6 MONTHS ;?OTHER ROUTE : UNDER THE SKIN;?
     Route: 050
     Dates: start: 202201

REACTIONS (1)
  - Cardiac failure [None]
